FAERS Safety Report 8985799 (Version 1)
Quarter: 2012Q4

REPORT INFORMATION
  Report Type: Report from Study
  Country: US (occurrence: US)
  Receive Date: 20121226
  Receipt Date: 20121226
  Transmission Date: 20130627
  Serious: Yes (Other)
  Sender: FDA-Public Use
  Company Number: US-JNJFOC-20121209724

PATIENT
  Age: 47 None
  Sex: Female
  Weight: 65.77 kg

DRUGS (10)
  1. REMICADE [Suspect]
     Indication: ANKYLOSING SPONDYLITIS
     Route: 042
  2. REMICADE [Suspect]
     Indication: ANKYLOSING SPONDYLITIS
     Route: 042
  3. REMICADE [Suspect]
     Indication: ANKYLOSING SPONDYLITIS
     Route: 042
     Dates: start: 20121114
  4. REMICADE [Suspect]
     Indication: ANKYLOSING SPONDYLITIS
     Route: 042
     Dates: start: 201110, end: 2011
  5. REMICADE [Suspect]
     Indication: ANKYLOSING SPONDYLITIS
     Route: 042
     Dates: start: 2012, end: 201210
  6. PERCOCET [Concomitant]
     Indication: PAIN
     Dosage: 5mg-325mg taken as needed
     Route: 048
  7. XANAX [Concomitant]
     Indication: MUSCLE SPASMS
     Dosage: smallest dose, taken as needed
     Route: 048
  8. XANAX [Concomitant]
     Indication: ANXIETY
     Dosage: smallest dose, taken as needed
     Route: 048
  9. VALIUM [Concomitant]
     Indication: MUSCLE SPASMS
     Dosage: taken as needed
     Route: 065
  10. UNKNOWN MEDICATION [Concomitant]
     Indication: MULTIPLE ALLERGIES
     Dosage: taken as needed
     Route: 065

REACTIONS (6)
  - Sinusitis [Recovered/Resolved]
  - Upper respiratory tract infection [Recovered/Resolved]
  - Adverse event [Recovered/Resolved]
  - Chest pain [Recovered/Resolved]
  - Hypertension [Recovered/Resolved]
  - Hot flush [Not Recovered/Not Resolved]
